FAERS Safety Report 5504989-9 (Version None)
Quarter: 2007Q4

REPORT INFORMATION
  Report Type: 
  Country: None (occurrence: None)
  Receive Date: 20071031
  Receipt Date: 20071026
  Transmission Date: 20080405
  Serious: Yes (Death, Hospitalization)
  Sender: FDA-Public Use
  Company Number: 163-21880-07060985

PATIENT
  Age: 68 Year
  Sex: Male

DRUGS (1)
  1. REVLIMID [Suspect]
     Indication: CHRONIC LYMPHOCYTIC LEUKAEMIA
     Dosage: 25 MG, 1 IN 1 D; ORAL
     Route: 048
     Dates: start: 20070205, end: 20070608

REACTIONS (4)
  - MULTI-ORGAN FAILURE [None]
  - NEUTROPENIA [None]
  - NON-HODGKIN'S LYMPHOMA [None]
  - PYREXIA [None]
